FAERS Safety Report 10079422 (Version 1)
Quarter: 2014Q2

REPORT INFORMATION
  Report Type: Spontaneous
  Country: US (occurrence: US)
  Receive Date: 20140415
  Receipt Date: 20140415
  Transmission Date: 20141212
  Serious: Yes (Death, Other)
  Sender: FDA-Public Use
  Company Number: PHHY2014US045309

PATIENT
  Age: 57 Year
  Sex: Female

DRUGS (3)
  1. NILOTINIB [Suspect]
     Indication: GASTROINTESTINAL STROMAL TUMOUR
     Route: 048
  2. NILOTINIB [Suspect]
     Indication: OFF LABEL USE
  3. SIROLIMUS [Suspect]
     Indication: GASTROINTESTINAL STROMAL TUMOUR

REACTIONS (2)
  - Death [Fatal]
  - Malignant neoplasm progression [Unknown]
